FAERS Safety Report 7044471-3 (Version None)
Quarter: 2010Q4

REPORT INFORMATION
  Report Type: 
  Country: None (occurrence: None)
  Receive Date: 20101014
  Receipt Date: 20101005
  Transmission Date: 20110411
  Serious: Yes (Hospitalization)
  Sender: FDA-Public Use
  Company Number: US-US-EMD SERONO, INC.-231851J09USA

PATIENT
  Sex: Male

DRUGS (5)
  1. REBIF [Suspect]
     Indication: MULTIPLE SCLEROSIS
     Route: 058
     Dates: start: 20091012, end: 20091026
  2. REBIF [Suspect]
     Route: 058
     Dates: start: 20091026
  3. REBIF [Suspect]
     Route: 058
     Dates: end: 20100901
  4. UNSPECIFIED MEDICATIONS [Concomitant]
  5. ORAL HOMEOPATHIC MEDICATION [Concomitant]
     Route: 048

REACTIONS (1)
  - MULTIPLE SCLEROSIS RELAPSE [None]
